FAERS Safety Report 6408227-4 (Version None)
Quarter: 2009Q4

REPORT INFORMATION
  Report Type: 
  Country: None (occurrence: None)
  Receive Date: 20091021
  Receipt Date: 20091009
  Transmission Date: 20100525
  Serious: Yes (Death)
  Sender: FDA-Public Use
  Company Number: US-JNJFOC-20091003557

PATIENT
  Age: 17 Month
  Sex: Male

DRUGS (1)
  1. CHILDRENS TYLENOL PLUS MULTI-SYMPTOM COLD [Suspect]
     Indication: NASOPHARYNGITIS
     Dosage: SEVERAL DOSES (^CUT IN HALF^) OVER TWO DAYS
     Route: 048

REACTIONS (3)
  - DRUG TOXICITY [None]
  - RESPIRATORY ARREST [None]
  - WRONG DRUG ADMINISTERED [None]
